FAERS Safety Report 7293849-1 (Version None)
Quarter: 2011Q1

REPORT INFORMATION
  Report Type: 
  Country: None (occurrence: None)
  Receive Date: 20110202
  Receipt Date: 20110127
  Transmission Date: 20110831
  Serious: Yes (Death, Hospitalization)
  Sender: FDA-Public Use
  Company Number: WAES 1010FRA00074

PATIENT
  Age: 83 Year
  Sex: Male

DRUGS (9)
  1. BROMAZEPAM [Concomitant]
  2. ZOLINZA [Suspect]
     Indication: MYELODYSPLASTIC SYNDROME
     Dosage: 400 MG/DAILY/PO
     Route: 048
     Dates: start: 20101006, end: 20101016
  3. ZOLINZA [Suspect]
     Indication: MYELODYSPLASTIC SYNDROME
     Dosage: 400 MG/DAILY/PO
     Route: 048
     Dates: start: 20101108, end: 20101121
  4. ZOLINZA [Suspect]
     Indication: MYELODYSPLASTIC SYNDROME
     Dosage: 400 MG/DAILY/PO
     Route: 048
     Dates: start: 20101206, end: 20101219
  5. FUROSEMIDE [Concomitant]
  6. CYTARABINE [Suspect]
     Indication: MYELODYSPLASTIC SYNDROME
     Dosage: 18.2 MG/DAILY/PO, 36.4 MG/DAILY/PO
     Route: 048
     Dates: start: 20101206, end: 20101219
  7. CYTARABINE [Suspect]
     Indication: MYELODYSPLASTIC SYNDROME
     Dosage: 18.2 MG/DAILY/PO, 36.4 MG/DAILY/PO
     Route: 048
     Dates: start: 20101108, end: 20101121
  8. IVABRADINE HYDROCHLORIDE [Concomitant]
  9. DIGOXIN [Concomitant]

REACTIONS (10)
  - TACHYCARDIA [None]
  - PYREXIA [None]
  - FEBRILE BONE MARROW APLASIA [None]
  - BRONCHOPULMONARY ASPERGILLOSIS [None]
  - RESPIRATORY DISTRESS [None]
  - SERRATIA TEST POSITIVE [None]
  - HYPOTENSION [None]
  - LUNG DISORDER [None]
  - FEBRILE NEUTROPENIA [None]
  - ATRIAL FIBRILLATION [None]
